FAERS Safety Report 8104402-1 (Version None)
Quarter: 2012Q1

REPORT INFORMATION
  Report Type: 
  Country: None (occurrence: None)
  Receive Date: 20120130
  Receipt Date: 20120121
  Transmission Date: 20120608
  Serious: Yes (Other)
  Sender: FDA-Public Use
  Company Number: CO-JNJFOC-20120109666

PATIENT
  Sex: Male
  Weight: 48 kg

DRUGS (4)
  1. VERAPAMIL [Concomitant]
     Indication: HYPERTENSION
     Route: 048
     Dates: start: 20060101
  2. ABIRATERONE ACETATE [Suspect]
     Indication: PROSTATE CANCER METASTATIC
     Route: 048
     Dates: start: 20111130, end: 20120120
  3. CARBIDOPA + LEVODOPA [Concomitant]
     Indication: PARKINSON'S DISEASE
     Route: 048
     Dates: start: 20111001
  4. HYDROCHLOROTHIAZIDE [Concomitant]
     Indication: HYPERTENSION
     Route: 048
     Dates: start: 20060101

REACTIONS (4)
  - BRADYKINESIA [None]
  - MUSCLE RIGIDITY [None]
  - FATIGUE [None]
  - AMNESIA [None]
